FAERS Safety Report 8275997-2 (Version None)
Quarter: 2012Q2

REPORT INFORMATION
  Report Type: 
  Country: None (occurrence: None)
  Receive Date: 20120412
  Receipt Date: 20120410
  Transmission Date: 20120825
  Serious: Yes (Hospitalization, Other)
  Sender: FDA-Public Use
  Company Number: US-PFIZER INC-2012084308

PATIENT
  Sex: Male

DRUGS (1)
  1. SUTENT [Suspect]
     Indication: METASTATIC RENAL CELL CARCINOMA
     Dosage: 50 MG (1 CAPSULE) DAILY, CYCLE 4 WEEKS ON AND 2 WEEKS OFF
     Dates: start: 20120321, end: 20120405

REACTIONS (12)
  - PAIN IN EXTREMITY [None]
  - ASTHENIA [None]
  - PYREXIA [None]
  - NAUSEA [None]
  - DYSPNOEA [None]
  - HAEMORRHAGE [None]
  - YELLOW SKIN [None]
  - DECREASED APPETITE [None]
  - FATIGUE [None]
  - HALLUCINATION [None]
  - MUSCULOSKELETAL PAIN [None]
  - BLOOD PRESSURE ABNORMAL [None]
